FAERS Safety Report 12087253 (Version 1)
Quarter: 2016Q1

REPORT INFORMATION
  Report Type: Spontaneous
  Country: US (occurrence: US)
  Receive Date: 20160217
  Receipt Date: 20160217
  Transmission Date: 20160526
  Serious: No
  Sender: FDA-Public Use
  Company Number: US-TAKEDA-2015TUS003822

PATIENT
  Sex: Female

DRUGS (3)
  1. THYROID MEDICATIONS [Concomitant]
     Indication: HYPOTHYROIDISM
     Dosage: UNK
  2. PREVACID [Suspect]
     Active Substance: LANSOPRAZOLE
     Indication: GASTROOESOPHAGEAL REFLUX DISEASE
  3. PREVACID [Suspect]
     Active Substance: LANSOPRAZOLE
     Indication: BARRETT^S OESOPHAGUS
     Dosage: 30 MG 1 TABLET, QD
     Route: 048
     Dates: start: 2001

REACTIONS (8)
  - White blood cell count increased [Unknown]
  - Alopecia [Unknown]
  - Hyperthyroidism [Unknown]
  - Muscle spasms [Unknown]
  - Pain in extremity [Unknown]
  - Hypothyroidism [Unknown]
  - Epistaxis [Unknown]
  - Prothrombin time prolonged [Unknown]
